FAERS Safety Report 11654320 (Version 1)
Quarter: 2015Q4

REPORT INFORMATION
  Report Type: Spontaneous
  Country: US (occurrence: None)
  Receive Date: 20151022
  Receipt Date: 20151022
  Transmission Date: 20160304
  Serious: Yes (Disabling)
  Sender: FDA-Public Use
  Company Number: None

PATIENT
  Age: 5 Year
  Sex: Male
  Weight: 45.36 kg

DRUGS (1)
  1. CONCERTA [Suspect]
     Active Substance: METHYLPHENIDATE HYDROCHLORIDE
     Indication: ATTENTION DEFICIT/HYPERACTIVITY DISORDER
     Dosage: TAKEN BY MOUTH
     Dates: start: 20070802, end: 20141002

REACTIONS (8)
  - Aggression [None]
  - Nightmare [None]
  - Paranoia [None]
  - Attention deficit/hyperactivity disorder [None]
  - Weight decreased [None]
  - Condition aggravated [None]
  - Blood pressure increased [None]
  - Agitation [None]

NARRATIVE: CASE EVENT DATE: 20080801
